FAERS Safety Report 6429552-7 (Version None)
Quarter: 2009Q4

REPORT INFORMATION
  Report Type: 
  Country: None (occurrence: None)
  Receive Date: 20091103
  Receipt Date: 20091021
  Transmission Date: 20100525
  Serious: Yes (Other)
  Sender: FDA-Public Use
  Company Number: 2009BI034163

PATIENT

DRUGS (2)
  1. ZEVALIN [Suspect]
     Indication: DRUG USE FOR UNKNOWN INDICATION
     Dosage: 1X; IV
     Route: 042
     Dates: start: 20091019, end: 20091019
  2. RITUXAN [Concomitant]

REACTIONS (1)
  - BONE DISORDER [None]
